FAERS Safety Report 23753665 (Version 1)
Quarter: 2024Q2

REPORT INFORMATION
  Report Type: Spontaneous
  Country: CN (occurrence: None)
  Receive Date: 20240417
  Receipt Date: 20240417
  Transmission Date: 20240716
  Serious: Yes (Hospitalization, Other)
  Sender: FDA-Public Use
  Company Number: 2024A088965

PATIENT
  Age: 15644 Day
  Sex: Male
  Weight: 96 kg

DRUGS (1)
  1. DAPAGLIFLOZIN [Suspect]
     Active Substance: DAPAGLIFLOZIN
     Indication: Blood glucose decreased
     Route: 048
     Dates: start: 20220610, end: 20240403

REACTIONS (4)
  - Pruritus genital [Recovering/Resolving]
  - Genital rash [Recovering/Resolving]
  - Chest discomfort [Unknown]
  - Tachypnoea [Unknown]

NARRATIVE: CASE EVENT DATE: 20231210
